FAERS Safety Report 4969346-2 (Version None)
Quarter: 2006Q2

REPORT INFORMATION
  Report Type: 
  Country: None (occurrence: None)
  Receive Date: 20060405
  Receipt Date: 20060323
  Transmission Date: 20061013
  Serious: Yes (Other)
  Sender: FDA-Public Use
  Company Number: 2006-0009360

PATIENT
  Sex: Male

DRUGS (1)
  1. TRUVADA [Suspect]

REACTIONS (4)
  - FANCONI SYNDROME [None]
  - RENAL CYST [None]
  - RENAL FAILURE [None]
  - RENAL MASS [None]
